FAERS Safety Report 8399336-1 (Version None)
Quarter: 2012Q2

REPORT INFORMATION
  Report Type: 
  Country: None (occurrence: None)
  Receive Date: 20120531
  Receipt Date: 20110520
  Transmission Date: 20120825
  Serious: No
  Sender: FDA-Public Use
  Company Number: US-NOVEN-11US002488

PATIENT
  Age: 12 Year
  Sex: Male

DRUGS (2)
  1. DAYTRANA [Suspect]
     Indication: ATTENTION DEFICIT/HYPERACTIVITY DISORDER
     Dosage: 30 MG, QD
     Route: 062
     Dates: start: 20110101
  2. DAYTRANA [Suspect]
     Dosage: UNK, QD
     Route: 062
     Dates: start: 20080101, end: 20110101

REACTIONS (1)
  - APPLICATION SITE ERYTHEMA [None]
